FAERS Safety Report 14115479 (Version 3)
Quarter: 2018Q1

REPORT INFORMATION
  Report Type: Spontaneous
  Country: IT (occurrence: IT)
  Receive Date: 20171023
  Receipt Date: 20180216
  Transmission Date: 20180508
  Serious: Yes (Other)
  Sender: FDA-Public Use
  Company Number: IT-PFIZER INC-2017453472

PATIENT
  Age: 75 Year
  Sex: Male

DRUGS (8)
  1. KANRENOL [Interacting]
     Active Substance: CANRENOATE POTASSIUM
     Indication: HYPERTENSION
     Dosage: 1 DF, DAILY
     Route: 048
  2. KCL-RETARD [Interacting]
     Active Substance: POTASSIUM CHLORIDE
     Indication: MINERAL SUPPLEMENTATION
     Dosage: 1 DF, DAILY (FOR ONE DAY)
     Route: 048
  3. CATAPRESAN TTS [Concomitant]
     Active Substance: CLONIDINE
  4. DOXAZOSIN MESILATE [Suspect]
     Active Substance: DOXAZOSIN MESYLATE
     Indication: HYPERTENSION
     Dosage: 1 DF, DAILY (FOR ONE DAY)
     Route: 048
  5. CARDIOASPIRIN [Concomitant]
     Active Substance: ASPIRIN
  6. ZYLORIC [Concomitant]
     Active Substance: ALLOPURINOL
  7. PERINDOPRIL [Interacting]
     Active Substance: PERINDOPRIL
     Indication: HYPERTENSION
     Dosage: 1 DF, DAILY (FOR ONE DAY)
     Route: 048
  8. NIFEREX [Concomitant]

REACTIONS (4)
  - Hyperkalaemia [Unknown]
  - Hyponatraemia [Unknown]
  - Asthenia [Unknown]
  - Drug interaction [Unknown]

NARRATIVE: CASE EVENT DATE: 20170814
